FAERS Safety Report 13583075 (Version 2)
Quarter: 2017Q2

REPORT INFORMATION
  Report Type: Spontaneous
  Country: US (occurrence: US)
  Receive Date: 20170525
  Receipt Date: 20170606
  Transmission Date: 20170830
  Serious: Yes (Other)
  Sender: FDA-Public Use
  Company Number: US-SUPERNUS PHARMACEUTICALS, INC.-2017SUP00119

PATIENT
  Age: 56 Year
  Sex: Female
  Weight: 95.24 kg

DRUGS (16)
  1. MAGNESIUM [Suspect]
     Active Substance: MAGNESIUM
  2. PREDNISONE  EYE DROPS [Suspect]
     Active Substance: PREDNISONE
     Indication: UVEITIS
     Dosage: UNK, 4X/DAY
     Dates: start: 201612
  3. TROKENDI XR [Suspect]
     Active Substance: TOPIRAMATE
     Indication: MIGRAINE
     Dosage: 1 TABLETS, 1X/DAY
     Route: 048
     Dates: start: 201512, end: 201702
  4. TROKENDI XR [Suspect]
     Active Substance: TOPIRAMATE
     Dosage: 50 MG, 1X/DAY
     Dates: start: 201705
  5. QVAR [Suspect]
     Active Substance: BECLOMETHASONE DIPROPIONATE
     Indication: SEASONAL ALLERGY
  6. TROKENDI XR [Suspect]
     Active Substance: TOPIRAMATE
     Indication: MIGRAINE
     Dosage: 1 TABLETS, 1X/DAY
     Route: 048
     Dates: start: 201512
  7. LEVOTHYROXINE. [Suspect]
     Active Substance: LEVOTHYROXINE
  8. CRESTOR [Suspect]
     Active Substance: ROSUVASTATIN CALCIUM
     Dosage: UNK, 1X/WEEK HALF OF A CRESTOR
  9. BETIMOL [Suspect]
     Active Substance: TIMOLOL
     Dosage: UNK, 1X/DAY
  10. UNSPECIFIED ALLERY MEDICATIONS [Suspect]
     Active Substance: UNSPECIFIED INGREDIENT
  11. UNSPECIFIED NASAL SPRAY [Suspect]
     Active Substance: UNSPECIFIED INGREDIENT
  12. VITAMIN B2 [Suspect]
     Active Substance: RIBOFLAVIN
  13. TROKENDI XR [Suspect]
     Active Substance: TOPIRAMATE
     Dosage: UNK SHE REDUCED FROM 150MG DAILY TO 100MG
     Route: 048
     Dates: start: 201512
  14. VERAPAMIL [Suspect]
     Active Substance: VERAPAMIL HYDROCHLORIDE
     Indication: MIGRAINE
     Dosage: 120 UNK, UNK
     Dates: start: 201702
  15. MILLION OTHER (EYE) DROPS [Suspect]
     Active Substance: UNSPECIFIED INGREDIENT
  16. PILOCARPINE. [Suspect]
     Active Substance: PILOCARPINE
     Dosage: UNK, 2X/DAY

REACTIONS (14)
  - Glaucoma [Recovering/Resolving]
  - Blindness unilateral [Recovered/Resolved with Sequelae]
  - Cataract [Not Recovered/Not Resolved]
  - Headache [Unknown]
  - Uveitis [Recovering/Resolving]
  - Occipital neuralgia [Not Recovered/Not Resolved]
  - Optic nerve injury [Recovered/Resolved with Sequelae]
  - Fatigue [Not Recovered/Not Resolved]
  - Mydriasis [Not Recovered/Not Resolved]
  - Macular hole [Recovering/Resolving]
  - Amnesia [Not Recovered/Not Resolved]
  - Eye oedema [Recovered/Resolved]
  - Drug ineffective [Unknown]
  - Eye pain [Not Recovered/Not Resolved]

NARRATIVE: CASE EVENT DATE: 201512
